FAERS Safety Report 17567561 (Version 2)
Quarter: 2020Q1

REPORT INFORMATION
  Report Type: Report from Study
  Country: None (occurrence: ES)
  Receive Date: 20200320
  Receipt Date: 20200326
  Transmission Date: 20200409
  Serious: Yes (Hospitalization)
  Sender: FDA-Public Use
  Company Number: ES-ABBVIE-20K-144-3329938-00

PATIENT
  Age: 77 Year
  Sex: Female

DRUGS (1)
  1. DUODOPA [Suspect]
     Active Substance: CARBIDOPA\LEVODOPA
     Indication: PARKINSON^S DISEASE
     Route: 050
     Dates: start: 20160614, end: 20200313

REACTIONS (4)
  - Thrombosis [Recovering/Resolving]
  - Parkinson^s disease [Unknown]
  - Hemiplegia [Unknown]
  - Bedridden [Unknown]

NARRATIVE: CASE EVENT DATE: 20200311
